FAERS Safety Report 9091867 (Version 2)
Quarter: 2013Q1

REPORT INFORMATION
  Report Type: Spontaneous
  Country: PT (occurrence: PT)
  Receive Date: 20130201
  Receipt Date: 20130301
  Transmission Date: 20140127
  Serious: Yes (Other)
  Sender: FDA-Public Use
  Company Number: PT-BAXTER-2013BAX003966

PATIENT
  Sex: Female

DRUGS (4)
  1. HOLOXAN [Suspect]
     Indication: SARCOMA
     Route: 042
  2. CISPLATIN [Suspect]
     Indication: SARCOMA
     Route: 065
  3. DOXORUBICIN [Suspect]
     Indication: SARCOMA
  4. DEXAMETHASONE [Concomitant]
     Indication: PRODUCT USED FOR UNKNOWN INDICATION
     Route: 065

REACTIONS (2)
  - Quadriplegia [Recovered/Resolved]
  - Fanconi syndrome [Recovered/Resolved]
